FAERS Safety Report 13329371 (Version 2)
Quarter: 2017Q1

REPORT INFORMATION
  Report Type: Spontaneous
  Country: IL (occurrence: IL)
  Receive Date: 20170313
  Receipt Date: 20170315
  Transmission Date: 20170428
  Serious: Yes (Hospitalization, Other)
  Sender: FDA-Public Use
  Company Number: IL-TEVA-745745ACC

PATIENT
  Age: 76 Year
  Sex: Female

DRUGS (3)
  1. CALCIUM [Concomitant]
     Active Substance: CALCIUM
  2. SIMVASTATIN 10MG [Suspect]
     Active Substance: SIMVASTATIN
     Indication: BLOOD TRIGLYCERIDES DECREASED
     Dosage: 10 MILLIGRAM DAILY;
     Dates: start: 201702, end: 20170227
  3. VITAMIN D [Concomitant]
     Active Substance: CHOLECALCIFEROL

REACTIONS (19)
  - Swelling face [Recovered/Resolved]
  - Product substitution issue [Unknown]
  - Dizziness [Not Recovered/Not Resolved]
  - Rash generalised [Recovering/Resolving]
  - Dyspnoea [Recovering/Resolving]
  - Dysphonia [Recovering/Resolving]
  - Tongue disorder [Recovering/Resolving]
  - Hypersensitivity [Recovering/Resolving]
  - Stridor [Unknown]
  - Asphyxia [Unknown]
  - Secondary hypertension [Recovering/Resolving]
  - Swollen tongue [Recovering/Resolving]
  - Dysphagia [Recovering/Resolving]
  - Chest discomfort [Recovering/Resolving]
  - Headache [Not Recovered/Not Resolved]
  - Dyspnoea [Recovering/Resolving]
  - Chest pain [Recovering/Resolving]
  - Bedridden [Recovering/Resolving]
  - Lip swelling [Recovering/Resolving]

NARRATIVE: CASE EVENT DATE: 2017
